FAERS Safety Report 5117233-1 (Version None)
Quarter: 2006Q3

REPORT INFORMATION
  Report Type: 
  Country: None (occurrence: None)
  Receive Date: 20060929
  Receipt Date: 20060728
  Transmission Date: 20061208
  Serious: Yes (Hospitalization)
  Sender: FDA-Public Use
  Company Number: PHRM2006FR02212

PATIENT
  Age: 68 Year
  Sex: Female
  Weight: 94 kg

DRUGS (7)
  1. DAFALGAN [Suspect]
     Dosage: 3 G, QD
     Route: 048
     Dates: start: 20060614
  2. OFLOCET [Suspect]
     Dosage: 400 MG, QD
     Route: 048
     Dates: start: 20060614, end: 20060703
  3. BISOPROLOL FUMARATE [Suspect]
     Dosage: 10 MG, QD
     Route: 048
     Dates: start: 20060614
  4. RIFADIN [Suspect]
     Indication: PYELONEPHRITIS
     Dosage: 300 MG, 6QD
     Route: 048
     Dates: start: 20060614, end: 20060627
  5. AMLOR [Suspect]
     Dosage: 5 MG, QD
     Route: 048
     Dates: start: 20060614
  6. TAREG [Suspect]
     Dosage: 80 MG, QD
     Route: 048
     Dates: start: 20060614
  7. ORACEFAL [Concomitant]

REACTIONS (8)
  - ALANINE AMINOTRANSFERASE INCREASED [None]
  - ASPARTATE AMINOTRANSFERASE INCREASED [None]
  - BLOOD ALKALINE PHOSPHATASE INCREASED [None]
  - CHOLESTASIS [None]
  - GAMMA-GLUTAMYLTRANSFERASE INCREASED [None]
  - HEPATITIS [None]
  - HYPERBILIRUBINAEMIA [None]
  - JAUNDICE [None]
